FAERS Safety Report 15288338 (Version 2)
Quarter: 2018Q3

REPORT INFORMATION
  Report Type: Report from Study
  Country: None (occurrence: CA)
  Receive Date: 20180817
  Receipt Date: 20180820
  Transmission Date: 20181010
  Serious: Yes (Hospitalization)
  Sender: FDA-Public Use
  Company Number: CA-ABBVIE-18K-028-2439152-00

PATIENT
  Age: 29 Year
  Sex: Male
  Weight: 52.21 kg

DRUGS (2)
  1. PREDNISONE. [Concomitant]
     Active Substance: PREDNISONE
     Indication: PRODUCT USED FOR UNKNOWN INDICATION
     Dates: start: 20180808
  2. HUMIRA [Suspect]
     Active Substance: ADALIMUMAB
     Indication: CROHN^S DISEASE
     Route: 058
     Dates: start: 20160126

REACTIONS (8)
  - Adverse event [Not Recovered/Not Resolved]
  - Enteritis [Unknown]
  - Intestinal fistula [Recovered/Resolved with Sequelae]
  - Small intestinal obstruction [Recovered/Resolved]
  - Lymphadenopathy [Unknown]
  - Crohn^s disease [Unknown]
  - Vomiting [Unknown]
  - Gastrointestinal wall thickening [Unknown]

NARRATIVE: CASE EVENT DATE: 2018
